FAERS Safety Report 18448949 (Version 1)
Quarter: 2020Q4

REPORT INFORMATION
  Report Type: Spontaneous
  Country: HR (occurrence: HR)
  Receive Date: 20201030
  Receipt Date: 20201030
  Transmission Date: 20210114
  Serious: Yes (Other)
  Sender: FDA-Public Use
  Company Number: HR-TEVA-2020-HR-1842427

PATIENT
  Sex: Female

DRUGS (3)
  1. PANTOPRAZOL [Suspect]
     Active Substance: PANTOPRAZOLE SODIUM
     Dosage: 6 DOSAGE FORMS ,1 DF = 1 TABLET
     Route: 048
     Dates: start: 20200909, end: 20200909
  2. BRUFEN [Suspect]
     Active Substance: IBUPROFEN
     Dosage: 3 GRAM
     Route: 048
     Dates: start: 20200909, end: 20200909
  3. KLAVOCIN [Suspect]
     Active Substance: AMOXICILLIN\CLAVULANIC ACID
     Dosage: 14 GRAM
     Route: 048
     Dates: start: 20200909, end: 20200909

REACTIONS (2)
  - Suicide attempt [Unknown]
  - Intentional overdose [Unknown]

NARRATIVE: CASE EVENT DATE: 20200909
